FAERS Safety Report 9486270 (Version 2)
Quarter: 2013Q3

REPORT INFORMATION
  Report Type: Spontaneous
  Country: DE (occurrence: DE)
  Receive Date: 20130829
  Receipt Date: 20130906
  Transmission Date: 20140515
  Serious: Yes (Hospitalization)
  Sender: FDA-Public Use
  Company Number: DE-AMGEN-DEUSP2013060363

PATIENT
  Age: 69 Year
  Sex: Female
  Weight: 60 kg

DRUGS (10)
  1. PEGFILGRASTIM [Suspect]
     Indication: PRODUCT USED FOR UNKNOWN INDICATION
     Dosage: 6 MG, UNK
     Route: 065
     Dates: start: 20130622, end: 20130622
  2. PEGFILGRASTIM [Suspect]
     Dosage: 6 MG, UNK
     Route: 065
     Dates: start: 20130808, end: 20130808
  3. PEGFILGRASTIM [Suspect]
     Dosage: 6 MG, UNK
     Route: 065
     Dates: start: 20130821, end: 20130822
  4. PACLITAXEL ALBUMIN [Suspect]
     Indication: BREAST CANCER
     Dosage: 560 MG, 1 IN 2 WK (330 MG/M2)
     Route: 042
     Dates: start: 20130621, end: 20130701
  5. PACLITAXEL ALBUMIN [Suspect]
     Dosage: UNK
     Route: 042
     Dates: start: 20130708
  6. CYCLOPHOSPHAMIDE [Suspect]
     Indication: BREAST CANCER
     Dosage: 3300 MG, 1 IN 2 WK (2000 MG/M2)
     Route: 042
     Dates: start: 20130807
  7. EPIRUBICIN                         /00699302/ [Concomitant]
     Indication: BREAST CANCER
     Dosage: 255 MG, 1 IN 2 WK (150 MG/M2)
     Route: 042
     Dates: start: 20130506
  8. SPIRIVA [Concomitant]
     Dosage: 18 MUG, 1 TIMES
  9. UROMITEXAN [Concomitant]
     Dosage: 3.2 G, UNK
     Dates: start: 20130807, end: 20130807
  10. DEXAMETHASON                       /00016001/ [Concomitant]
     Dosage: 8 MG, DAILY DOSE
     Dates: start: 20130807, end: 20130824

REACTIONS (2)
  - Pyrexia [Recovered/Resolved]
  - Febrile neutropenia [Recovered/Resolved]
